FAERS Safety Report 24333184 (Version 1)
Quarter: 2024Q3

REPORT INFORMATION
  Report Type: Spontaneous
  Country: JP (occurrence: JP)
  Receive Date: 20240918
  Receipt Date: 20240918
  Transmission Date: 20241016
  Serious: Yes (Hospitalization)
  Sender: ELI LILLY AND CO
  Company Number: JP-NShinyaku-EVA202406130ZZLILLY

PATIENT
  Sex: Male

DRUGS (1)
  1. TADALAFIL [Suspect]
     Active Substance: TADALAFIL
     Indication: Benign prostatic hyperplasia
     Dosage: UNK
     Route: 048
     Dates: end: 2024

REACTIONS (2)
  - Subdural haematoma [Unknown]
  - Subdural haematoma evacuation [Unknown]

NARRATIVE: CASE EVENT DATE: 20240501
